FAERS Safety Report 24388054 (Version 1)
Quarter: 2024Q4

REPORT INFORMATION
  Report Type: Spontaneous
  Country: US (occurrence: US)
  Receive Date: 20241002
  Receipt Date: 20241002
  Transmission Date: 20250114
  Serious: No
  Sender: MERCK
  Company Number: US-009507513-2409USA009607

PATIENT
  Age: 69 Year
  Sex: Male

DRUGS (6)
  1. SIVEXTRO [Suspect]
     Active Substance: TEDIZOLID PHOSPHATE
     Indication: Cerebral nocardiosis
     Route: 048
  2. SIVEXTRO [Suspect]
     Active Substance: TEDIZOLID PHOSPHATE
     Indication: Pulmonary nocardiosis
  3. SIVEXTRO [Suspect]
     Active Substance: TEDIZOLID PHOSPHATE
     Indication: Infection
  4. MEROPENEM [Concomitant]
     Active Substance: MEROPENEM
     Indication: Pulmonary nocardiosis
     Dosage: UNK
  5. MEROPENEM [Concomitant]
     Active Substance: MEROPENEM
     Indication: Cerebral nocardiosis
  6. MEROPENEM [Concomitant]
     Active Substance: MEROPENEM
     Indication: Infection

REACTIONS (1)
  - Product use in unapproved indication [Unknown]
